FAERS Safety Report 8328444-6 (Version None)
Quarter: 2012Q2

REPORT INFORMATION
  Report Type: 
  Country: None (occurrence: None)
  Receive Date: 20120502
  Receipt Date: 20120425
  Transmission Date: 20120825
  Serious: Yes (Hospitalization, Other)
  Sender: FDA-Public Use
  Company Number: US-PFIZER INC-2012012836

PATIENT
  Sex: Male

DRUGS (2)
  1. SUTENT [Suspect]
     Indication: METASTATIC RENAL CELL CARCINOMA
     Dosage: UNK
     Route: 048
     Dates: start: 20120220
  2. SUTENT [Suspect]
     Indication: RENAL CANCER
     Dosage: 50 MG, 1X/DAY X 28 DAYS (4 WKS ON, 2 WKS OFF)
     Route: 048
     Dates: start: 20111219, end: 20120102

REACTIONS (7)
  - CONFUSIONAL STATE [None]
  - CONVULSION [None]
  - DISORIENTATION [None]
  - MUSCULAR WEAKNESS [None]
  - HYPOAESTHESIA [None]
  - ASTHENIA [None]
  - HYPONATRAEMIA [None]
